FAERS Safety Report 8115887-9 (Version None)
Quarter: 2012Q1

REPORT INFORMATION
  Report Type: 
  Country: None (occurrence: None)
  Receive Date: 20120206
  Receipt Date: 20120203
  Transmission Date: 20120608
  Serious: Yes (Death, Hospitalization, Other)
  Sender: FDA-Public Use
  Company Number: DE-GENZYME-THYM-1002969

PATIENT
  Age: 61 Year
  Sex: Female
  Weight: 80 kg

DRUGS (6)
  1. METHYLPREDNISOLONE [Concomitant]
     Dosage: 500 MG, QD
     Route: 042
     Dates: start: 20110922, end: 20110924
  2. METHYLPREDNISOLONE [Concomitant]
     Dosage: 500 MG, QD
     Route: 042
     Dates: start: 20110929, end: 20111001
  3. METHYLPREDNISOLONE [Concomitant]
     Indication: HEART TRANSPLANT REJECTION
     Dosage: 500 MG, QD
     Route: 042
     Dates: start: 20110915, end: 20110917
  4. THYMOGLOBULIN [Suspect]
     Dosage: 175 MG, QD
     Route: 042
     Dates: start: 20110929, end: 20111001
  5. THYMOGLOBULIN [Suspect]
     Dosage: 1.5 MG/KG, QD
     Route: 042
     Dates: start: 20111025, end: 20111027
  6. THYMOGLOBULIN [Suspect]
     Indication: HEART TRANSPLANT REJECTION
     Dosage: 100 MG, QD
     Route: 042
     Dates: start: 20110922, end: 20110922

REACTIONS (5)
  - HEART TRANSPLANT REJECTION [None]
  - MULTI-ORGAN FAILURE [None]
  - INFECTION [None]
  - NON-HODGKIN'S LYMPHOMA [None]
  - ESCHERICHIA URINARY TRACT INFECTION [None]
